FAERS Safety Report 20424641 (Version 2)
Quarter: 2022Q1

REPORT INFORMATION
  Report Type: Report from Study
  Country: GB (occurrence: GB)
  Receive Date: 20220203
  Receipt Date: 20220209
  Transmission Date: 20220423
  Serious: Yes (Death, Other)
  Sender: FDA-Public Use
  Company Number: GB-CELLTRION INC.-2022GB000088

PATIENT

DRUGS (7)
  1. TRASTUZUMAB [Suspect]
     Active Substance: TRASTUZUMAB
     Indication: Breast cancer metastatic
     Dosage: 600 MG, EVERY 3 WEEKS (PHARMACEUTICAL DOSE FORM: 293)
     Route: 041
     Dates: start: 20160425
  2. DOCETAXEL [Suspect]
     Active Substance: DOCETAXEL
     Indication: Breast cancer metastatic
     Dosage: 120 MG, EVERY 3 WEEKS (PHARMACEUTICAL DOSE FORM: 293)
     Route: 042
     Dates: start: 20160314, end: 20160810
  3. LETROZOLE [Suspect]
     Active Substance: LETROZOLE
     Indication: Breast cancer metastatic
     Dosage: 2.5 MG, PER 1 DAY
     Route: 048
     Dates: start: 20190709
  4. LETROZOLE [Suspect]
     Active Substance: LETROZOLE
     Dosage: 3 MG, PER 1 DAY
     Route: 048
     Dates: start: 20190709
  5. PERTUZUMAB [Suspect]
     Active Substance: PERTUZUMAB
     Indication: Breast cancer metastatic
     Dosage: 420 MG, EVERY 3 WEEKS (PHARMACEUTICAL DOSE FORM: 230)
     Route: 042
     Dates: start: 20160516
  6. TAMOXIFEN [Suspect]
     Active Substance: TAMOXIFEN
     Indication: Breast cancer metastatic
     Dosage: 20 MG, PER 1 DAY (PHARMACEUTICAL DOSE FORM: 82)
     Route: 048
     Dates: start: 20161010, end: 20190708
  7. TAMOXIFEN CITRATE [Suspect]
     Active Substance: TAMOXIFEN CITRATE
     Indication: Breast cancer metastatic
     Dosage: 20 MG, DAILY
     Route: 048
     Dates: start: 20161010

REACTIONS (4)
  - Death [Fatal]
  - Metastases to central nervous system [Recovered/Resolved]
  - Lymphoedema [Recovered/Resolved]
  - Constipation [Recovered/Resolved]

NARRATIVE: CASE EVENT DATE: 20161001
